FAERS Safety Report 23764738 (Version 2)
Quarter: 2024Q2

REPORT INFORMATION
  Report Type: Spontaneous
  Country: US (occurrence: US)
  Receive Date: 20240420
  Receipt Date: 20240506
  Transmission Date: 20240716
  Serious: Yes (Other)
  Sender: FDA-Public Use
  Company Number: US-AUROBINDO-AUR-APL-2024-017949

PATIENT
  Age: 66 Year
  Sex: Female
  Weight: 110.2 kg

DRUGS (2)
  1. OLOPATADINE HYDROCHLORIDE [Suspect]
     Active Substance: OLOPATADINE HYDROCHLORIDE
     Indication: Hypersensitivity
     Dosage: 1 DROP ( IN EACH EYE)
     Route: 065
     Dates: start: 20240411, end: 20240411
  2. METFORMIN [Concomitant]
     Active Substance: METFORMIN HYDROCHLORIDE
     Indication: Product used for unknown indication
     Dosage: UNK
     Route: 065

REACTIONS (4)
  - Syncope [Unknown]
  - Cluster headache [Unknown]
  - Dizziness [Unknown]
  - Hypoaesthesia [Unknown]
